FAERS Safety Report 9749835 (Version 1)
Quarter: 2013Q4

REPORT INFORMATION
  Report Type: Spontaneous
  Country: US (occurrence: US)
  Receive Date: 20131212
  Receipt Date: 20131212
  Transmission Date: 20140711
  Serious: No
  Sender: FDA-Public Use
  Company Number: US-PFIZER INC-2013355182

PATIENT
  Age: 77 Year
  Sex: Female

DRUGS (1)
  1. LYRICA [Suspect]
     Indication: RESTLESS LEGS SYNDROME
     Dosage: 1 DF, 2X/DAY [ONE CAPSULE IN MORNING AND ONE CAPSULE IN NIGHT]

REACTIONS (3)
  - Off label use [Unknown]
  - Neuralgia [Unknown]
  - Back disorder [Unknown]
